FAERS Safety Report 6193225-9 (Version None)
Quarter: 2009Q2

REPORT INFORMATION
  Report Type: 
  Country: None (occurrence: None)
  Receive Date: 20090518
  Receipt Date: 20090508
  Transmission Date: 20091009
  Serious: Yes (Hospitalization)
  Sender: FDA-Public Use
  Company Number: A0784396A

PATIENT
  Age: 67 Year
  Sex: Male
  Weight: 84.1 kg

DRUGS (9)
  1. AVANDIA [Suspect]
     Indication: DIABETES MELLITUS
     Route: 048
  2. INSULIN [Concomitant]
  3. BENAZEPRIL HYDROCHLORIDE [Concomitant]
  4. LIPITOR [Concomitant]
  5. COREG [Concomitant]
  6. FLEXERIL [Concomitant]
  7. GABAPENTIN [Concomitant]
  8. LEVITRA [Concomitant]
  9. METFORMIN HCL [Concomitant]

REACTIONS (1)
  - MYOCARDIAL INFARCTION [None]
